FAERS Safety Report 5287119-0 (Version None)
Quarter: 2007Q2

REPORT INFORMATION
  Report Type: 
  Country: None (occurrence: None)
  Receive Date: 20070404
  Receipt Date: 20070329
  Transmission Date: 20071010
  Serious: Yes (Other)
  Sender: FDA-Public Use
  Company Number: US-PFIZER INC-2006153923

PATIENT
  Sex: Male

DRUGS (4)
  1. XANAX [Suspect]
  2. VERAPAMIL HYDROCHLORIDE CAPLET [Suspect]
     Dates: start: 20051201
  3. TEMAZEPAM [Suspect]
  4. DEPAKOTE [Suspect]

REACTIONS (3)
  - ERECTILE DYSFUNCTION [None]
  - PRIAPISM [None]
  - SURGERY [None]
